FAERS Safety Report 9053865 (Version 5)
Quarter: 2013Q4

REPORT INFORMATION
  Report Type: Not Available
  Country: DK (occurrence: DK)
  Receive Date: 20130207
  Receipt Date: 20131212
  Transmission Date: 20140711
  Serious: Yes (Hospitalization, Disabling)
  Sender: FDA-Public Use
  Company Number: DK-NAPPMUNDI-GBR-2013-0013148

PATIENT
  Age: 69 Year
  Sex: Female

DRUGS (10)
  1. MORPHINE SULFATE CR TABLET [Suspect]
     Indication: PAIN
     Dosage: 10 MG, UNK
     Route: 048
     Dates: start: 201212, end: 20130107
  2. ARANESP [Concomitant]
     Dosage: UNK
     Route: 065
     Dates: start: 20120408
  3. CARVEDILOL [Concomitant]
     Dosage: UNK
     Route: 065
     Dates: start: 20120412, end: 20120412
  4. FURIX [Concomitant]
     Dosage: UNK
     Route: 065
     Dates: start: 20120323
  5. IMUREL                             /00001501/ [Concomitant]
     Dosage: UNK
     Route: 065
     Dates: start: 200204
  6. CALCIUM [Concomitant]
     Dosage: UNK
     Route: 065
     Dates: start: 20120321
  7. LOSARTAN POTASSIUM [Concomitant]
     Dosage: UNK
     Route: 065
     Dates: start: 20110414
  8. PREDNISOLONE [Concomitant]
     Dosage: UNK
     Route: 065
     Dates: start: 200204
  9. PINEX                              /00020001/ [Concomitant]
     Dosage: UNK
     Route: 065
     Dates: start: 201301
  10. PANTOPRAZOL [Concomitant]
     Dosage: UNK
     Route: 065
     Dates: start: 20120321

REACTIONS (4)
  - Unevaluable event [Not Recovered/Not Resolved]
  - Nausea [Not Recovered/Not Resolved]
  - Vomiting [Not Recovered/Not Resolved]
  - Constipation [Not Recovered/Not Resolved]
